FAERS Safety Report 18174439 (Version 1)
Quarter: 2020Q3

REPORT INFORMATION
  Report Type: Spontaneous
  Country: US (occurrence: US)
  Receive Date: 20200819
  Receipt Date: 20200819
  Transmission Date: 20201103
  Serious: Yes (Hospitalization)
  Sender: FDA-Public Use
  Company Number: None

PATIENT
  Age: 34 Year
  Sex: Female

DRUGS (9)
  1. FLUTICASONE. [Concomitant]
     Active Substance: FLUTICASONE
  2. ALBUTEROL AER [Concomitant]
     Active Substance: ALBUTEROL
  3. PULMOZYME [Suspect]
     Active Substance: DORNASE ALFA
     Indication: INFECTIVE PULMONARY EXACERBATION OF CYSTIC FIBROSIS
     Route: 055
     Dates: start: 20191126
  4. CELECOXIB. [Concomitant]
     Active Substance: CELECOXIB
  5. APAP/CODEINE [Concomitant]
     Active Substance: ACETAMINOPHEN\CODEINE PHOSPHATE
  6. OSELTAMIVIR [Concomitant]
     Active Substance: OSELTAMIVIR
  7. LEVOFLOXACIN. [Concomitant]
     Active Substance: LEVOFLOXACIN
  8. CEFDINIR. [Concomitant]
     Active Substance: CEFDINIR
  9. MONTELUKAST [Concomitant]
     Active Substance: MONTELUKAST SODIUM

REACTIONS (2)
  - Pneumonia [None]
  - Haemoptysis [None]

NARRATIVE: CASE EVENT DATE: 202007
